FAERS Safety Report 15160321 (Version 1)
Quarter: 2018Q3

REPORT INFORMATION
  Report Type: Spontaneous
  Country: DE (occurrence: DE)
  Receive Date: 20180718
  Receipt Date: 20180718
  Transmission Date: 20181010
  Serious: Yes (Other)
  Sender: FDA-Public Use
  Company Number: DE-TEVA-2018-DE-924159

PATIENT
  Sex: Male

DRUGS (1)
  1. IRBESARTAN COMP. RATIOPHARM 300/25 FILMTABLETTEN [Suspect]
     Active Substance: HYDROCHLOROTHIAZIDE\IRBESARTAN
     Indication: HYPERTENSION
     Dosage: 1 DOSAGE FORMS DAILY; 1 DOSAGE FORM= 300 MG IRBESARTAN AND 25 MG HYDROCHLOROTHIAZIDE
     Route: 048

REACTIONS (1)
  - Glaucoma [Unknown]
